FAERS Safety Report 4988125-3 (Version None)
Quarter: 2006Q2

REPORT INFORMATION
  Report Type: 
  Country: None (occurrence: None)
  Receive Date: 20060425
  Receipt Date: 20060413
  Transmission Date: 20061013
  Serious: Yes (Death)
  Sender: FDA-Public Use
  Company Number: GXKR2006TR02083

PATIENT
  Age: 19 Month
  Sex: Female

DRUGS (3)
  1. CARBOPLATIN [Suspect]
     Indication: BRAIN CANCER METASTATIC
     Dosage: 400 MG/M2, ONCE/SINGLE
  2. LOMUSTINE (LOMUSTINE) [Suspect]
     Indication: BRAIN CANCER METASTATIC
     Dosage: 75 MG/M2, ONCE/SINGLE
  3. VINCRISTINE [Suspect]
     Indication: BRAIN CANCER METASTATIC
     Dosage: 1.5 MG/M2, ONCE/SINGLE

REACTIONS (18)
  - ANURIA [None]
  - ASCITES [None]
  - GASTROINTESTINAL HAEMORRHAGE [None]
  - GENERAL PHYSICAL HEALTH DETERIORATION [None]
  - HAEMOGLOBIN DECREASED [None]
  - HAEMORRHAGE [None]
  - HEPATOMEGALY [None]
  - IRRITABILITY [None]
  - MUCOSAL ULCERATION [None]
  - OEDEMA PERIPHERAL [None]
  - PNEUMONIA [None]
  - RECTAL HAEMORRHAGE [None]
  - RESPIRATORY DISTRESS [None]
  - THERAPY NON-RESPONDER [None]
  - THROMBOSIS [None]
  - VENOOCCLUSIVE LIVER DISEASE [None]
  - WEIGHT INCREASED [None]
  - WHITE BLOOD CELL COUNT DECREASED [None]
